FAERS Safety Report 15900835 (Version 1)
Quarter: 2019Q1

REPORT INFORMATION
  Report Type: Report from Study
  Country: IT (occurrence: IT)
  Receive Date: 20190201
  Receipt Date: 20190201
  Transmission Date: 20190417
  Serious: Yes (Other)
  Sender: FDA-Public Use
  Company Number: IT-ACCORD-104863

PATIENT
  Age: 74 Year
  Sex: Female

DRUGS (11)
  1. ROSUVASTATIN. [Concomitant]
     Active Substance: ROSUVASTATIN
  2. ALDACTONE [Concomitant]
     Active Substance: SPIRONOLACTONE
     Dosage: 25 MG HARD CAPSULES
  3. SOLDESAM [Concomitant]
     Active Substance: DEXAMETHASONE
  4. RIVOTRIL [Concomitant]
     Active Substance: CLONAZEPAM
     Dosage: 2.5 MG / ML
  5. CARBOPLATIN. [Suspect]
     Active Substance: CARBOPLATIN
     Indication: BLADDER CANCER
     Route: 042
     Dates: start: 20180712, end: 20181003
  6. ZOLPIDEM [Concomitant]
     Active Substance: ZOLPIDEM\ZOLPIDEM TARTRATE
  7. LANSOPRAZOLE. [Concomitant]
     Active Substance: LANSOPRAZOLE
  8. GEMCITABINE/GEMCITABINE HYDROCHLORIDE [Suspect]
     Active Substance: GEMCITABINE\GEMCITABINE HYDROCHLORIDE
     Indication: BLADDER CANCER
     Route: 042
     Dates: start: 20180621, end: 20181003
  9. SELEPARINA [Concomitant]
     Active Substance: NADROPARIN CALCIUM
     Dosage: 3.800 IU ANTI XA / 0.4 ML
  10. TACHIDOL [Concomitant]
     Active Substance: ACETAMINOPHEN\CODEINE PHOSPHATE
     Dosage: 500 MG / 30 MG EFFERVESCENT GRANULES
  11. ENTUMIN [Concomitant]
     Active Substance: CLOTHIAPINE
     Dosage: 100 MG/ML

REACTIONS (5)
  - Thrombocytopenia [Recovering/Resolving]
  - Leukopenia [Recovering/Resolving]
  - Urinary tract infection [Recovering/Resolving]
  - Pyrexia [Recovering/Resolving]
  - Off label use [Unknown]

NARRATIVE: CASE EVENT DATE: 20180907
